FAERS Safety Report 25718087 (Version 2)
Quarter: 2025Q4

REPORT INFORMATION
  Report Type: Report from Study
  Country: EU (occurrence: EU)
  Receive Date: 20250823
  Receipt Date: 20251024
  Transmission Date: 20260118
  Serious: Yes (Hospitalization, Other)
  Sender: AMGEN
  Company Number: EU-AMGEN-IRLSL2025109902

PATIENT
  Age: 55 Year
  Sex: Female

DRUGS (11)
  1. NEULASTA [Suspect]
     Active Substance: PEGFILGRASTIM
     Indication: Hypogammaglobulinaemia
     Dosage: 6 MILLIGRAM (AS PER PRESCRIPTION)
     Route: 058
     Dates: start: 20200825
  2. NEULASTA [Suspect]
     Active Substance: PEGFILGRASTIM
     Indication: Off label use
     Dosage: 6 MILLIGRAM (AS PER PRESCRIPTION)
     Route: 058
     Dates: start: 20250418
  3. PREDNISOLONE [Concomitant]
     Active Substance: PREDNISOLONE
     Indication: Product used for unknown indication
     Dosage: 100 MILLIGRAM  (AS PER CHEMO PRESCRIPTION)
     Route: 050
  4. EMEND [Concomitant]
     Active Substance: APREPITANT
     Indication: Product used for unknown indication
     Dosage: 125 MILLIGRAM (AS PER CHEMO PRESCRIPTIO)
     Route: 050
  5. CYCLIZINE [Concomitant]
     Active Substance: CYCLIZINE
     Indication: Product used for unknown indication
     Dosage: 50 MILLIGRAM
     Route: 050
  6. ALLOPURINOL [Concomitant]
     Active Substance: ALLOPURINOL
     Indication: Product used for unknown indication
     Dosage: 300 MILLIGRAM
     Route: 050
  7. SULFAMETHOXAZOLE\TRIMETHOPRIM [Concomitant]
     Active Substance: SULFAMETHOXAZOLE\TRIMETHOPRIM
     Indication: Product used for unknown indication
     Dosage: 480 MILLIGRAM (AS PER CHEMO PRESCRIPTION)
     Route: 050
  8. OMEPRAZOLE [Concomitant]
     Active Substance: OMEPRAZOLE
     Indication: Product used for unknown indication
     Dosage: 40 MILLIGRAM  (AS PER CHEMO PRESCRIPTION)
     Route: 050
  9. Sertral [Concomitant]
     Dosage: 50 MILLIGRAM, QD
     Route: 050
  10. FAMVIR [Concomitant]
     Active Substance: FAMCICLOVIR
     Dosage: 500 MILLIGRAM, BID
     Route: 050
  11. HYQVIA [Concomitant]
     Active Substance: HUMAN IMMUNOGLOBULIN G\HYALURONIDASE (HUMAN RECOMBINANT)
     Indication: Product used for unknown indication
     Dosage: 27.5 GRAM (AS PER PRESCRIPTION)
     Route: 058

REACTIONS (6)
  - Ear neoplasm [Unknown]
  - Pneumonia [Unknown]
  - Herpes zoster [Unknown]
  - Pruritus [Recovered/Resolved]
  - Cough [Not Recovered/Not Resolved]
  - Off label use [Unknown]

NARRATIVE: CASE EVENT DATE: 20200825
